FAERS Safety Report 23813117 (Version 1)
Quarter: 2024Q2

REPORT INFORMATION
  Report Type: Spontaneous
  Country: US (occurrence: US)
  Receive Date: 20240503
  Receipt Date: 20240503
  Transmission Date: 20240715
  Serious: No
  Sender: FDA-Public Use
  Company Number: US-AMNEAL PHARMACEUTICALS-2023-AMRX-03585

PATIENT
  Sex: Female
  Weight: 51.8 kg

DRUGS (1)
  1. VIGABATRIN [Suspect]
     Active Substance: VIGABATRIN
     Indication: Seizure
     Dosage: 500 MG POWDER, MIX 30 PACKETS IN 30 ML OF WATER AND GIVE/TAKE 30ML (1500 MG) EVERY MORNING AND (1500
     Route: 065

REACTIONS (1)
  - Illness [Unknown]
